FAERS Safety Report 19443911 (Version 1)
Quarter: 2021Q2

REPORT INFORMATION
  Report Type: Spontaneous
  Country: US (occurrence: US)
  Receive Date: 20210621
  Receipt Date: 20210621
  Transmission Date: 20210717
  Serious: No
  Sender: FDA-Public Use
  Company Number: NVSC2021US138201

PATIENT
  Sex: Female

DRUGS (1)
  1. DUREZOL [Suspect]
     Active Substance: DIFLUPREDNATE
     Indication: IRITIS
     Dosage: UNK
     Route: 065

REACTIONS (2)
  - Intraocular pressure increased [Unknown]
  - Iritis [Not Recovered/Not Resolved]
